FAERS Safety Report 16410767 (Version 2)
Quarter: 2019Q2

REPORT INFORMATION
  Report Type: Report from Study
  Country: US (occurrence: US)
  Receive Date: 20190610
  Receipt Date: 20190617
  Transmission Date: 20190711
  Serious: Yes (Life-Threatening, Other)
  Sender: FDA-Public Use
  Company Number: US-OTSUKA-2019_022142

PATIENT
  Age: 57 Year
  Sex: Male

DRUGS (1)
  1. TOLVAPTAN [Suspect]
     Active Substance: TOLVAPTAN
     Indication: PRODUCT USED FOR UNKNOWN INDICATION
     Dosage: UNK
     Route: 065
     Dates: start: 201810, end: 20190604

REACTIONS (8)
  - Blood glucose increased [Unknown]
  - Blood creatinine increased [Unknown]
  - Liver injury [Not Recovered/Not Resolved]
  - Mean cell haemoglobin concentration increased [Unknown]
  - Glomerular filtration rate decreased [Unknown]
  - Blood urea nitrogen/creatinine ratio decreased [Unknown]
  - Urine protein/creatinine ratio increased [Unknown]
  - Mean cell haemoglobin increased [Unknown]

NARRATIVE: CASE EVENT DATE: 20190417
